FAERS Safety Report 15977112 (Version 1)
Quarter: 2019Q1

REPORT INFORMATION
  Report Type: Report from Study
  Country: RU (occurrence: RU)
  Receive Date: 20190218
  Receipt Date: 20190218
  Transmission Date: 20190418
  Serious: Yes (Other)
  Sender: FDA-Public Use
  Company Number: RU-ELI_LILLY_AND_COMPANY-RU201901005846

PATIENT
  Sex: Female

DRUGS (1)
  1. TERIPARATIDE [Suspect]
     Active Substance: TERIPARATIDE
     Indication: PRODUCT USED FOR UNKNOWN INDICATION
     Dosage: 1 DF, DAILY
     Route: 065
     Dates: start: 20180826, end: 20190113

REACTIONS (8)
  - General physical health deterioration [Unknown]
  - Tachycardia [Unknown]
  - Hyperhidrosis [Unknown]
  - Nausea [Unknown]
  - Visual impairment [Not Recovered/Not Resolved]
  - Feeling abnormal [Unknown]
  - Emphysema [Unknown]
  - Asthma [Unknown]
